FAERS Safety Report 9825834 (Version 2)
Quarter: 2014Q1

REPORT INFORMATION
  Report Type: Report from Study
  Country: US (occurrence: US)
  Receive Date: 20140117
  Receipt Date: 20140203
  Transmission Date: 20141002
  Serious: Yes (Other)
  Sender: FDA-Public Use
  Company Number: US-JNJFOC-20140106528

PATIENT
  Age: 50 Year
  Sex: Female

DRUGS (2)
  1. REMICADE [Suspect]
     Indication: PSORIASIS
     Dosage: 2 INFUSION OF INFLIXIMAB
     Route: 042
     Dates: start: 1998
  2. REMICADE [Suspect]
     Indication: ARTHRITIS
     Dosage: 2 INFUSION OF INFLIXIMAB
     Route: 042
     Dates: start: 1998

REACTIONS (2)
  - Convulsion [Recovered/Resolved]
  - Tuberculosis [Recovered/Resolved]
